FAERS Safety Report 20219105 (Version 2)
Quarter: 2022Q1

REPORT INFORMATION
  Report Type: Report from Study
  Country: DE (occurrence: None)
  Receive Date: 20211222
  Receipt Date: 20220111
  Transmission Date: 20220423
  Serious: Yes (Hospitalization)
  Sender: FDA-Public Use
  Company Number: DE-ROCHE-2982168

PATIENT
  Age: 59 Year
  Sex: Male
  Weight: 79 kg

DRUGS (7)
  1. RITUXIMAB [Suspect]
     Active Substance: RITUXIMAB
     Indication: Waldenstrom^s macroglobulinaemia
     Dosage: ON DAY 1 CYCLE 1
     Route: 041
     Dates: start: 20191107, end: 20191107
  2. RITUXIMAB [Suspect]
     Active Substance: RITUXIMAB
     Indication: Waldenstrom^s macroglobulinaemia
     Dosage: FIX DOSE, MAINTENANCE PHASE (ON DAY 1 EVERY 2ND CYCLE)?ON 07/OCT/2021, MOST RECENT DOSE OF RITUXIMAB
     Route: 058
     Dates: start: 20191205
  3. BORTEZOMIB [Suspect]
     Active Substance: BORTEZOMIB
     Indication: Waldenstrom^s macroglobulinaemia
     Route: 058
     Dates: start: 20191107, end: 20200409
  4. IBRUTINIB [Suspect]
     Active Substance: IBRUTINIB
     Indication: Waldenstrom^s macroglobulinaemia
     Dosage: MAINTENANCE DOSE ?ON 07/NOV/2021, RECEIVED MOST RECENT DOSE OF IBRUTINIB PRIOR TO SAE
     Route: 048
     Dates: start: 20191107
  5. CANDESARTAN [Concomitant]
     Active Substance: CANDESARTAN
     Indication: Hypertension
     Route: 048
     Dates: start: 20200712
  6. AMLODIPINE BESYLATE [Concomitant]
     Active Substance: AMLODIPINE BESYLATE
     Indication: Hypertension
     Route: 048
     Dates: start: 20200712
  7. DIMETHINDENE [Concomitant]
     Active Substance: DIMETHINDENE
     Indication: Pruritus
     Dosage: 10 DROPS
     Route: 048

REACTIONS (1)
  - COVID-19 pneumonia [Recovered/Resolved]

NARRATIVE: CASE EVENT DATE: 20211108
